FAERS Safety Report 7979482-4 (Version None)
Quarter: 2011Q4

REPORT INFORMATION
  Report Type: 
  Country: None (occurrence: None)
  Receive Date: 20111214
  Receipt Date: 20111212
  Transmission Date: 20120403
  Serious: Yes (Life-Threatening, Other)
  Sender: FDA-Public Use
  Company Number: PHEH2010US01229

PATIENT
  Sex: Female

DRUGS (19)
  1. METOPROLOL SUCCINATE [Suspect]
     Dosage: 50 MG, QD
  2. ANTIBIOTICS [Suspect]
  3. ASCORBIC ACID [Concomitant]
  4. VITAMIN E [Concomitant]
  5. VITAMIN B NOS [Concomitant]
  6. NAPROXEN SODIUM [Concomitant]
     Dosage: 300 MG,
  7. VITAMIN D [Concomitant]
  8. ZINC [Concomitant]
  9. VIVELLE-DOT [Suspect]
     Dosage: 0.05 MG, QW2
     Route: 062
     Dates: start: 19950101
  10. SIMILASAN [Concomitant]
     Indication: DRY EYE
  11. TOPROL-XL [Concomitant]
     Dosage: 50 MG, QD
  12. VITAMIN A [Concomitant]
  13. POTASSIUM CHLORIDE [Concomitant]
  14. TYLENOL-500 [Concomitant]
     Dosage: 650 MG, 2 TABLETS, 1XDAY IN THE MORNING
  15. VIVELLE-DOT [Suspect]
     Dosage: 0.05 MG, QW2
     Route: 062
  16. RANITIDINE HYDROCHLORIDE [Suspect]
     Indication: GASTROOESOPHAGEAL REFLUX DISEASE
     Dosage: 150 MG, QD
     Route: 048
  17. FLAGYL [Suspect]
  18. EQUATE (ACETYLSALICYLIC ACID) [Concomitant]
     Indication: ARTHRITIS
     Dosage: 650 MG, BID
  19. ZANTAC [Concomitant]
     Dosage: 150 MG, BID
     Route: 048

REACTIONS (18)
  - MALAISE [None]
  - PHARYNGEAL OEDEMA [None]
  - APPLICATION SITE PAIN [None]
  - SLEEP TALKING [None]
  - INSOMNIA [None]
  - PAIN IN EXTREMITY [None]
  - ABDOMINAL DISCOMFORT [None]
  - PYREXIA [None]
  - URTICARIA [None]
  - ERYTHEMA [None]
  - COLD SWEAT [None]
  - OEDEMA PERIPHERAL [None]
  - MIDDLE INSOMNIA [None]
  - HYPERSENSITIVITY [None]
  - APPLICATION SITE RASH [None]
  - APPLICATION SITE PRURITUS [None]
  - DRUG INEFFECTIVE [None]
  - MUSCLE SPASMS [None]
